FAERS Safety Report 12861948 (Version 2)
Quarter: 2016Q4

REPORT INFORMATION
  Report Type: Spontaneous
  Country: US (occurrence: US)
  Receive Date: 20161019
  Receipt Date: 20161201
  Transmission Date: 20170207
  Serious: No
  Sender: FDA-Public Use
  Company Number: US-PFIZER INC-2016487222

PATIENT
  Age: 60 Year
  Sex: Female

DRUGS (1)
  1. LYRICA [Suspect]
     Active Substance: PREGABALIN
     Indication: NEURALGIA
     Dosage: 50 MG, UNK
     Dates: start: 2012

REACTIONS (5)
  - Stress [Recovered/Resolved]
  - Body height decreased [Unknown]
  - Intentional product misuse [Recovered/Resolved]
  - Malaise [Recovered/Resolved]
  - Gastric disorder [Recovered/Resolved]
